FAERS Safety Report 10343385 (Version 1)
Quarter: 2014Q3

REPORT INFORMATION
  Report Type: Spontaneous
  Country: GB (occurrence: GB)
  Receive Date: 20140725
  Receipt Date: 20140725
  Transmission Date: 20150326
  Serious: Yes (Hospitalization)
  Sender: FDA-Public Use
  Company Number: GB-009507513-1407GBR009047

PATIENT
  Age: 1 Day
  Sex: Male
  Weight: 2.95 kg

DRUGS (17)
  1. RANITIDINE [Concomitant]
     Active Substance: RANITIDINE\RANITIDINE HYDROCHLORIDE
     Dosage: ONE TO BE TAKEN TWICE A DAY
     Dates: start: 20131028, end: 20140403
  2. CYCLIZINE [Concomitant]
     Active Substance: CYCLIZINE
     Dosage: ONE TO BE TAKEN THREE TIMES A DAY
     Route: 064
     Dates: start: 20130911, end: 20130928
  3. PYRIDOXINE [Concomitant]
     Active Substance: PYRIDOXINE
     Dosage: 10 MG, OD
     Route: 064
     Dates: start: 20130513, end: 20130812
  4. RIFINAH [Concomitant]
     Active Substance: ISONIAZID\RIFAMPIN
     Dosage: 4 TABS, OD
     Route: 064
     Dates: start: 20130513, end: 20130812
  5. POTASSIUM BICARBONATE (+) SODIUM ALGINATE [Concomitant]
     Dosage: STRENGTH 100MG/5ML+500MG/5 ML, 10ML, TWICE A DAY
     Route: 064
     Dates: start: 20131009, end: 20140109
  6. FULTIUM D3 [Concomitant]
     Dosage: ONE, OD
     Route: 064
     Dates: start: 20131104, end: 20131203
  7. FOLIC ACID. [Concomitant]
     Active Substance: FOLIC ACID
     Dosage: ONE TAB
     Route: 064
     Dates: start: 20131028, end: 20131126
  8. NEXPLANON [Suspect]
     Active Substance: ETONOGESTREL
     Dosage: UNK
     Route: 064
     Dates: start: 201012, end: 20130912
  9. AMOXICILLIN. [Concomitant]
     Active Substance: AMOXICILLIN
     Dosage: ONE TO BE TAKEN THREE TIMES A DAY
     Route: 064
     Dates: start: 20130723, end: 20130731
  10. IMPLANON [Suspect]
     Active Substance: ETONOGESTREL
     Dosage: UNK
     Route: 064
     Dates: start: 201012, end: 20130918
  11. FERROUS FUMARATE [Concomitant]
     Active Substance: FERROUS FUMARATE
     Dosage: ONE TO BE TAKEN TWICE A DAY
     Route: 064
     Dates: start: 20140304
  12. OMEPRAZOLE. [Concomitant]
     Active Substance: OMEPRAZOLE
     Dosage: 1 TWICE A DAY
     Route: 064
     Dates: start: 20121205
  13. FLOXACILLIN [Concomitant]
     Active Substance: FLUCLOXACILLIN
     Dosage: ONE TO BE TAKEN FOUR TIMES A DAY
     Route: 064
     Dates: start: 20131127, end: 20140618
  14. PROCHLORPERAZINE. [Concomitant]
     Active Substance: PROCHLORPERAZINE
     Dosage: ONE TO BE TAKEN TWICE A DAY
     Route: 064
     Dates: start: 20131009, end: 20131022
  15. IBUPROFEN. [Concomitant]
     Active Substance: IBUPROFEN
     Dosage: ONE OR TWO TO BE TAKEN THREE TIMES A DAY
     Route: 064
     Dates: start: 20130905, end: 20130914
  16. LACTULOSE. [Concomitant]
     Active Substance: LACTULOSE
     Dosage: 5-10 MLS TWICE A DAY AS REQUIRED
     Route: 064
     Dates: start: 20140317, end: 20140429
  17. AMOXICILLIN. [Concomitant]
     Active Substance: AMOXICILLIN
     Dosage: ONE TO BE TAKEN THREE TIMES A DAY
     Route: 064
     Dates: start: 20131009, end: 20131017

REACTIONS (3)
  - Respiratory disorder neonatal [Unknown]
  - Premature baby [Unknown]
  - Foetal exposure during pregnancy [Recovered/Resolved]

NARRATIVE: CASE EVENT DATE: 20140422
